FAERS Safety Report 4594248-3 (Version None)
Quarter: 2005Q1

REPORT INFORMATION
  Report Type: 
  Country: None (occurrence: None)
  Receive Date: 20050301
  Receipt Date: 20040813
  Transmission Date: 20050727
  Serious: No
  Sender: FDA-Public Use
  Company Number: US-GLAXOSMITHKLINE-A0522139A

PATIENT
  Age: 49 Year
  Sex: Female
  Weight: 60.5 kg

DRUGS (7)
  1. VALTREX [Suspect]
     Indication: IMMUNOSUPPRESSANT DRUG THERAPY
     Dosage: 500MG PER DAY
     Route: 048
     Dates: start: 19970901
  2. NIACIN [Suspect]
     Dosage: 500MG PER DAY
     Route: 048
     Dates: start: 20040601
  3. ASPIRIN [Concomitant]
     Dosage: 81MG PER DAY
     Route: 048
     Dates: start: 20040601
  4. MINOCYCLINE HCL [Concomitant]
  5. ESTRATEST [Concomitant]
  6. SPIRONOLACTONE [Concomitant]
  7. AMOXICILLIN [Concomitant]

REACTIONS (2)
  - DRUG INEFFECTIVE [None]
  - DRUG INTERACTION [None]
